FAERS Safety Report 12249132 (Version 1)
Quarter: 2016Q2

REPORT INFORMATION
  Report Type: Spontaneous
  Country: US (occurrence: None)
  Receive Date: 20160407
  Receipt Date: 20160407
  Transmission Date: 20160815
  Serious: No
  Sender: FDA-Public Use
  Company Number: None

PATIENT
  Age: 58 Year
  Sex: Male
  Weight: 90.7 kg

DRUGS (1)
  1. INFLIXIMAB [Suspect]
     Active Substance: INFLIXIMAB
     Dosage: 450 MG OTHER IV
     Route: 042
     Dates: start: 20160226, end: 20160226

REACTIONS (4)
  - Chest discomfort [None]
  - Dyspnoea [None]
  - Infusion related reaction [None]
  - Heart rate increased [None]

NARRATIVE: CASE EVENT DATE: 20160226
